FAERS Safety Report 9482127 (Version 3)
Quarter: 2013Q3

REPORT INFORMATION
  Report Type: Report from Study
  Country: AU (occurrence: AU)
  Receive Date: 20130828
  Receipt Date: 20130923
  Transmission Date: 20140515
  Serious: Yes (Other)
  Sender: FDA-Public Use
  Company Number: PHHY2013AU092639

PATIENT
  Age: 18 Year
  Sex: Male

DRUGS (6)
  1. CLOZARIL [Suspect]
     Indication: SCHIZOPHRENIA
     Dosage: 750 MG
     Dates: start: 201304
  2. QUETIAPINE [Concomitant]
     Dosage: 500 MG, NOCTE
     Route: 048
     Dates: start: 201303
  3. QUETIAPINE [Concomitant]
     Dosage: UNK SLOWLY BEING REDUCED
  4. DULOXETINE [Concomitant]
     Dosage: 90 MG, QD
     Route: 048
     Dates: start: 201303
  5. SEROQUEL [Concomitant]
     Dosage: UNK UKN, UNK
  6. FLUOXETINE [Concomitant]
     Dosage: UNK UKN, UNK

REACTIONS (4)
  - Encephalopathy [Unknown]
  - Electroencephalogram abnormal [Unknown]
  - Antipsychotic drug level below therapeutic [Recovering/Resolving]
  - Drug effect incomplete [Unknown]
